FAERS Safety Report 9925993 (Version 2)
Quarter: 2014Q2

REPORT INFORMATION
  Report Type: Report from Study
  Country: DE (occurrence: DE)
  Receive Date: 20140226
  Receipt Date: 20140424
  Transmission Date: 20141212
  Serious: Yes (Other)
  Sender: FDA-Public Use
  Company Number: DE-ABBVIE-14P-062-1204435-00

PATIENT
  Age: 52 Year
  Sex: Female
  Weight: 112 kg

DRUGS (2)
  1. HUMIRA [Suspect]
     Indication: RHEUMATOID ARTHRITIS
     Route: 058
     Dates: start: 20100608
  2. RAMIPRIL [Concomitant]
     Indication: HYPERTENSION

REACTIONS (1)
  - Hearing impaired [Recovered/Resolved]
